FAERS Safety Report 19959622 (Version 1)
Quarter: 2021Q4

REPORT INFORMATION
  Report Type: Spontaneous
  Country: NL (occurrence: NL)
  Receive Date: 20211015
  Receipt Date: 20211015
  Transmission Date: 20220303
  Serious: Yes (Hospitalization)
  Sender: FDA-Public Use
  Company Number: None

PATIENT
  Age: 67 Year
  Sex: Male
  Weight: 84 kg

DRUGS (11)
  1. CLINDAMYCIN [Suspect]
     Active Substance: CLINDAMYCIN
     Indication: Erysipelas
     Dosage: 600 MILLIGRAM, Q8H (3X PER DAG 2)
     Dates: start: 20210614, end: 20210624
  2. DESOXIMETASONE [Concomitant]
     Active Substance: DESOXIMETASONE
     Dosage: UNK (SMEERSEL (EMULSIE), 2,5 MG/G (MILLIGRAM PER GRAM)
  3. ZINC OXIDE [Concomitant]
     Active Substance: ZINC OXIDE
     Dosage: UNK (PASTA, 600 MG/G (MILLIGRAM PER GRAM)
  4. ESOMEPRAZOLE [Concomitant]
     Active Substance: ESOMEPRAZOLE
     Dosage: UNK (MAAGSAPRESISTENTE CAPSULE, 40 MG (MILLIGRAM)
  5. CICLOPIROX [Concomitant]
     Active Substance: CICLOPIROX
     Dosage: UNK (CREME, 10 MG/G (MILLIGRAM PER GRAM)
  6. OMEPRAZOLE [Concomitant]
     Active Substance: OMEPRAZOLE
     Dosage: UNK (MAAGSAPRESISTENTE CAPSULE, 20 MG (MILLIGRAM)
  7. SIMVASTATIN [Concomitant]
     Active Substance: SIMVASTATIN
     Dosage: UNK (FILMOMHULDE TABLET, 40 MG (MILLIGRAM)
  8. VASELINE                           /01007601/ [Concomitant]
     Dosage: UNK (ZALF, 500/500 MG/G (MILLIGRAM PER GRAM)
  9. ASPIRIN [Concomitant]
     Active Substance: ASPIRIN
     Dosage: UNK (TABLET, 80 MG (MILLIGRAM)
  10. CLOBETASOL [Concomitant]
     Active Substance: CLOBETASOL
     Dosage: UNK (CREME, 0,5 MG/G (MILLIGRAM PER GRAM)
  11. CETIRIZINE [Concomitant]
     Active Substance: CETIRIZINE HYDROCHLORIDE
     Dosage: UNK (TABLET, 10 MG (MILLIGRAM)

REACTIONS (6)
  - Chest discomfort [Recovering/Resolving]
  - Dyspnoea [Recovering/Resolving]
  - Dysphagia [Recovering/Resolving]
  - Vomiting [Recovering/Resolving]
  - Oesophagitis [Recovering/Resolving]
  - Pruritus [Recovering/Resolving]

NARRATIVE: CASE EVENT DATE: 20210621
